FAERS Safety Report 24983725 (Version 4)
Quarter: 2025Q2

REPORT INFORMATION
  Report Type: Report from Study
  Country: CO (occurrence: CO)
  Receive Date: 20250219
  Receipt Date: 20250514
  Transmission Date: 20250716
  Serious: Yes (Other)
  Sender: JOHNSON AND JOHNSON
  Company Number: CO-JNJFOC-20250169227

PATIENT
  Age: 40 Year
  Sex: Female
  Weight: 81 kg

DRUGS (4)
  1. SIMPONI [Suspect]
     Active Substance: GOLIMUMAB
     Indication: Ankylosing spondylitis
     Route: 058
     Dates: start: 20240110
  2. DEXAMETHASONE [Concomitant]
     Active Substance: DEXAMETHASONE
     Indication: Product used for unknown indication
  3. DICLOFENAC [Concomitant]
     Active Substance: DICLOFENAC
     Indication: Product used for unknown indication
  4. DOMEBORO [Concomitant]
     Active Substance: ALUMINUM SULFATE TETRADECAHYDRATE\CALCIUM ACETATE MONOHYDRATE
     Indication: Product used for unknown indication

REACTIONS (12)
  - Nail operation [Unknown]
  - Matrixectomy [Unknown]
  - Synovial cyst [Unknown]
  - Influenza [Not Recovered/Not Resolved]
  - Sinusitis [Not Recovered/Not Resolved]
  - Ingrowing nail [Not Recovered/Not Resolved]
  - Nail infection [Not Recovered/Not Resolved]
  - Localised infection [Not Recovered/Not Resolved]
  - Pain [Not Recovered/Not Resolved]
  - Malaise [Unknown]
  - Postoperative wound infection [Unknown]
  - Myalgia [Unknown]

NARRATIVE: CASE EVENT DATE: 20240814
